FAERS Safety Report 8895447 (Version 1)
Quarter: 2012Q4

REPORT INFORMATION
  Report Type: 
  Country: US (occurrence: US)
  Receive Date: 20121107
  Receipt Date: 20121107
  Transmission Date: 20130627
  Serious: Yes (Other)
  Sender: FDA-Public Use
  Company Number: PHHY2012US101291

PATIENT
  Age: 60 Year
  Sex: Male

DRUGS (1)
  1. BUFFERIN EXTRA STRENGTH [Suspect]
     Indication: MIGRAINE
     Dates: start: 1970

REACTIONS (5)
  - Joint injury [Recovered/Resolved]
  - Back injury [Recovered/Resolved]
  - Messed up the lining of my stomach. [Recovering/Resolving]
  - Incorrect drug administration duration [Unknown]
  - Aura [Unknown]
